FAERS Safety Report 4352387-6 (Version None)
Quarter: 2004Q2

REPORT INFORMATION
  Report Type: 
  Country: None (occurrence: None)
  Receive Date: 20040423
  Receipt Date: 20030709
  Transmission Date: 20050107
  Serious: Yes (Hospitalization)
  Sender: FDA-Public Use
  Company Number: CIP03001979

PATIENT
  Age: 72 Year
  Sex: Female

DRUGS (1)
  1. MACROBID [Suspect]
     Indication: URINARY TRACT INFECTION
     Dosage: 100 MG TWICE DAILY, ORAL
     Route: 048

REACTIONS (4)
  - ARTHRALGIA [None]
  - CHEST PAIN [None]
  - RASH [None]
  - RASH GENERALISED [None]
